FAERS Safety Report 12055789 (Version 1)
Quarter: 2016Q1

REPORT INFORMATION
  Report Type: Spontaneous
  Country: US (occurrence: US)
  Receive Date: 20160209
  Receipt Date: 20160209
  Transmission Date: 20160526
  Serious: No
  Sender: FDA-Public Use
  Company Number: US-SEPTODONT-201502693

PATIENT
  Sex: Female

DRUGS (1)
  1. POLOCAINE [Suspect]
     Active Substance: MEPIVACAINE HYDROCHLORIDE
     Indication: LOCAL ANAESTHESIA
     Dosage: UNKNOWN DOSE
     Route: 004

REACTIONS (2)
  - Drug hypersensitivity [None]
  - Hypersensitivity [Unknown]
